FAERS Safety Report 21000151 (Version 1)
Quarter: 2022Q2

REPORT INFORMATION
  Report Type: Spontaneous
  Country: US (occurrence: US)
  Receive Date: 20220623
  Receipt Date: 20220623
  Transmission Date: 20220721
  Serious: Yes (Death)
  Sender: FDA-Public Use
  Company Number: US-BRISTOL-MYERS SQUIBB COMPANY-2022-056286

PATIENT
  Age: 82 Year
  Sex: Female
  Weight: 65.3 kg

DRUGS (11)
  1. REVLIMID [Suspect]
     Active Substance: LENALIDOMIDE
     Indication: Product used for unknown indication
     Route: 048
     Dates: start: 20130405, end: 20180409
  2. REVLIMID [Suspect]
     Active Substance: LENALIDOMIDE
     Route: 048
     Dates: start: 20181022, end: 20181206
  3. DEXAMETHASONE [Suspect]
     Active Substance: DEXAMETHASONE
     Indication: Product used for unknown indication
     Route: 048
     Dates: start: 20130405, end: 20150126
  4. DEXAMETHASONE [Suspect]
     Active Substance: DEXAMETHASONE
     Dosage: WEEKLY
     Route: 048
     Dates: start: 20150127, end: 20180409
  5. DEXAMETHASONE [Suspect]
     Active Substance: DEXAMETHASONE
     Dosage: QW
     Route: 048
     Dates: start: 20180507, end: 20180918
  6. DEXAMETHASONE [Suspect]
     Active Substance: DEXAMETHASONE
     Dosage: D 1,8,15 Q 28D
     Route: 048
     Dates: start: 20181022, end: 20181206
  7. DEXAMETHASONE [Suspect]
     Active Substance: DEXAMETHASONE
     Dosage: D 1,8,15 Q 28D
     Route: 048
     Dates: start: 20181220, end: 20201219
  8. CARFILZOMIB [Suspect]
     Active Substance: CARFILZOMIB
     Indication: Plasma cell myeloma
     Route: 042
     Dates: start: 20181220, end: 20181220
  9. CARFILZOMIB [Suspect]
     Active Substance: CARFILZOMIB
     Dosage: D 1,8,15 Q 28D
     Route: 042
     Dates: start: 20181227, end: 20201219
  10. POMALIDOMIDE [Concomitant]
     Active Substance: POMALIDOMIDE
     Indication: Product used for unknown indication
     Dosage: QD D 1-21 Q 28D
     Route: 048
     Dates: start: 20180507, end: 20180918
  11. IXAZOMIB [Concomitant]
     Active Substance: IXAZOMIB
     Indication: Product used for unknown indication
     Dosage: DAYS 1,8 AND 15 Q 28D
     Route: 048
     Dates: start: 20181022, end: 20181206

REACTIONS (1)
  - Infection [Fatal]

NARRATIVE: CASE EVENT DATE: 20201219
